FAERS Safety Report 6464979-9 (Version None)
Quarter: 2009Q4

REPORT INFORMATION
  Report Type: 
  Country: None (occurrence: None)
  Receive Date: 20091201
  Receipt Date: 20091120
  Transmission Date: 20100525
  Serious: Yes (Hospitalization)
  Sender: FDA-Public Use
  Company Number: US-ELI_LILLY_AND_COMPANY-US200911005766

PATIENT
  Sex: Female

DRUGS (3)
  1. GEMCITABINE HCL [Suspect]
     Indication: OVARIAN CANCER
     Dosage: 800 MG/M2, UNKNOWN
     Route: 042
     Dates: start: 20080129
  2. DOCETAXEL [Suspect]
     Indication: OVARIAN CANCER
     Dosage: 75 MG/M2, UNKNOWN
     Route: 042
     Dates: start: 20080122
  3. MORPHINE [Concomitant]
     Indication: PAIN
     Dosage: UNK, UNKNOWN
     Route: 065

REACTIONS (2)
  - INTESTINAL OBSTRUCTION [None]
  - SMALL INTESTINAL OBSTRUCTION [None]
